FAERS Safety Report 5749216-2 (Version None)
Quarter: 2008Q2

REPORT INFORMATION
  Report Type: 
  Country: None (occurrence: None)
  Receive Date: 20080522
  Receipt Date: 20080509
  Transmission Date: 20081010
  Serious: Yes (Life-Threatening)
  Sender: FDA-Public Use
  Company Number: 02100-JPN-07-0804

PATIENT
  Age: 76 Year
  Sex: Male
  Weight: 55 kg

DRUGS (12)
  1. PLETAL [Suspect]
     Indication: ARTERIOSCLEROSIS OBLITERANS
     Dosage: 100 MG, BID ORAL
     Route: 048
     Dates: start: 20071109, end: 20071221
  2. PROSTANDIN (ALPROSTADIL) INJECTION [Suspect]
     Indication: ARTERIOSCLEROSIS OBLITERANS
     Dosage: 60 UG, BID : 60 UG, DAILY DOSE
     Dates: start: 20071103
  3. DIOVAN [Suspect]
     Indication: HYPERTENSION
     Dosage: 8 MG, QD; ORAL
     Route: 048
     Dates: end: 20071221
  4. EPADEL S (ETHYL ICOSAPENTATE) CAPSULE [Concomitant]
  5. WARFARIN (WARFARIN POTASSIUM) TABLET [Concomitant]
  6. AMARYL [Concomitant]
  7. GLYCORAN (METFORMIN HYDROCHLORIDE) [Concomitant]
  8. ACTOS [Concomitant]
  9. PLETAL [Concomitant]
  10. HEPARIN SODIUM [Concomitant]
  11. PANSPORIN (CEFOTIAM HYDROCHLORIDE) INJECTION [Concomitant]
  12. GANATON(ITOPRIDE HYDROCHLORIDE) [Concomitant]

REACTIONS (2)
  - BLOOD LACTATE DEHYDROGENASE INCREASED [None]
  - EOSINOPHILIC PNEUMONIA [None]
